APPROVED DRUG PRODUCT: BENZONATATE
Active Ingredient: BENZONATATE
Strength: 150MG
Dosage Form/Route: CAPSULE;ORAL
Application: A040851 | Product #002
Applicant: MIKART LLC
Approved: Nov 9, 2009 | RLD: No | RS: No | Type: DISCN